FAERS Safety Report 7833322-2 (Version None)
Quarter: 2011Q4

REPORT INFORMATION
  Report Type: 
  Country: None (occurrence: None)
  Receive Date: 20111024
  Receipt Date: 20111013
  Transmission Date: 20120403
  Serious: Yes (Other)
  Sender: FDA-Public Use
  Company Number: US-US-EMD SERONO, INC.-7066265

PATIENT
  Sex: Female

DRUGS (2)
  1. REBIF [Suspect]
     Indication: MULTIPLE SCLEROSIS
     Route: 058
     Dates: start: 20100618
  2. TIZANIDINE HCL [Concomitant]
     Indication: ARTHRITIS

REACTIONS (9)
  - JOINT DISLOCATION [None]
  - SUICIDAL IDEATION [None]
  - VEIN DISORDER [None]
  - OSTEOARTHRITIS [None]
  - MUSCLE SPASMS [None]
  - DEPRESSION [None]
  - PARAESTHESIA [None]
  - HIP DEFORMITY [None]
  - OEDEMA PERIPHERAL [None]
